FAERS Safety Report 4717734-1 (Version None)
Quarter: 2005Q3

REPORT INFORMATION
  Report Type: 
  Country: None (occurrence: None)
  Receive Date: 20050714
  Receipt Date: 20050107
  Transmission Date: 20060218
  Serious: No
  Sender: FDA-Public Use
  Company Number: 04P-163-0282127-00

PATIENT
  Sex: Female

DRUGS (1)
  1. ULTANE [Suspect]
     Indication: ROTATOR CUFF REPAIR
     Dosage: 2 LIT, INHALATION
     Route: 055
     Dates: start: 20041125, end: 20041125

REACTIONS (1)
  - HEPATITIS [None]
